FAERS Safety Report 25477726 (Version 1)
Quarter: 2025Q2

REPORT INFORMATION
  Report Type: Spontaneous
  Country: FR (occurrence: FR)
  Receive Date: 20250625
  Receipt Date: 20250625
  Transmission Date: 20250717
  Serious: Yes (Death, Other)
  Sender: HIKMA
  Company Number: None

PATIENT
  Age: 77 Year
  Sex: Female
  Weight: 65 kg

DRUGS (23)
  1. CARBOPLATIN [Suspect]
     Active Substance: CARBOPLATIN
     Indication: Lung neoplasm malignant
     Route: 042
     Dates: start: 20241023, end: 20241023
  2. CARBOPLATIN [Suspect]
     Active Substance: CARBOPLATIN
     Route: 042
     Dates: start: 20241113, end: 20241113
  3. CARBOPLATIN [Suspect]
     Active Substance: CARBOPLATIN
     Route: 042
     Dates: start: 20241204, end: 20241204
  4. CARBOPLATIN [Suspect]
     Active Substance: CARBOPLATIN
     Route: 042
     Dates: start: 20241226, end: 20241226
  5. PEMETREXED [Suspect]
     Active Substance: PEMETREXED
     Dosage: 562.5 MILLIGRAM, QD
     Route: 042
     Dates: start: 20250319, end: 20250319
  6. PEMETREXED [Suspect]
     Active Substance: PEMETREXED
     Dosage: 787.5 MILLIGRAM, QD
     Route: 042
     Dates: start: 20241113, end: 20241113
  7. PEMETREXED [Suspect]
     Active Substance: PEMETREXED
     Dosage: 790 MILLIGRAM, QD
     Route: 042
     Dates: start: 20241204, end: 20241204
  8. PEMETREXED [Suspect]
     Active Substance: PEMETREXED
     Indication: Lung neoplasm malignant
     Dosage: 800 MILLIGRAM, QD
     Route: 042
     Dates: start: 20241023, end: 20241023
  9. PEMETREXED [Suspect]
     Active Substance: PEMETREXED
     Dosage: 800 MILLIGRAM, QD
     Route: 042
     Dates: start: 20241226, end: 20241226
  10. PEMETREXED [Suspect]
     Active Substance: PEMETREXED
     Dosage: 800 MILLIGRAM, QD
     Route: 042
     Dates: start: 20250115, end: 20250115
  11. PEMETREXED [Suspect]
     Active Substance: PEMETREXED
     Dosage: 800 MILLIGRAM, QD
     Route: 042
     Dates: start: 20250205, end: 20250205
  12. AMIVANTAMAB [Suspect]
     Active Substance: AMIVANTAMAB
     Dosage: 1050 MILLIGRAM, QD
     Route: 042
     Dates: start: 20241024, end: 20241024
  13. AMIVANTAMAB [Suspect]
     Active Substance: AMIVANTAMAB
     Dosage: 1400 MILLIGRAM, QD
     Route: 042
     Dates: start: 20241030, end: 20241030
  14. AMIVANTAMAB [Suspect]
     Active Substance: AMIVANTAMAB
     Dosage: 1400 MILLIGRAM, QD
     Route: 042
     Dates: start: 20241106, end: 20241106
  15. AMIVANTAMAB [Suspect]
     Active Substance: AMIVANTAMAB
     Dosage: 1400 MILLIGRAM, QD
     Route: 042
     Dates: start: 20241113, end: 20241113
  16. AMIVANTAMAB [Suspect]
     Active Substance: AMIVANTAMAB
     Dosage: 1400 MILLIGRAM, QD
     Route: 042
     Dates: start: 20250319, end: 20250319
  17. AMIVANTAMAB [Suspect]
     Active Substance: AMIVANTAMAB
     Dosage: 1400 MILLIGRAM, QD
     Route: 042
     Dates: start: 20250409, end: 20250409
  18. AMIVANTAMAB [Suspect]
     Active Substance: AMIVANTAMAB
     Dosage: 1400 MILLIGRAM, QD
     Route: 042
     Dates: start: 20250430, end: 20250430
  19. AMIVANTAMAB [Suspect]
     Active Substance: AMIVANTAMAB
     Dosage: 1750 MILLIGRAM, QD
     Route: 042
     Dates: start: 20241204, end: 20241204
  20. AMIVANTAMAB [Suspect]
     Active Substance: AMIVANTAMAB
     Dosage: 1750 MILLIGRAM, QD
     Route: 042
     Dates: start: 20241226, end: 20241226
  21. AMIVANTAMAB [Suspect]
     Active Substance: AMIVANTAMAB
     Dosage: 1750 MILLIGRAM, QD
     Route: 042
     Dates: start: 20250115, end: 20250115
  22. AMIVANTAMAB [Suspect]
     Active Substance: AMIVANTAMAB
     Dosage: 1750 MILLIGRAM, QD
     Route: 042
     Dates: start: 20250205, end: 20250205
  23. AMIVANTAMAB [Suspect]
     Active Substance: AMIVANTAMAB
     Indication: Lung neoplasm malignant
     Dosage: 350 MILLIGRAM, QD
     Route: 042
     Dates: start: 20241023, end: 20241023

REACTIONS (1)
  - Interstitial lung disease [Fatal]

NARRATIVE: CASE EVENT DATE: 20250510
